FAERS Safety Report 9467390 (Version 1)
Quarter: 2013Q3

REPORT INFORMATION
  Report Type: Spontaneous
  Country: RU (occurrence: RU)
  Receive Date: 20130821
  Receipt Date: 20130821
  Transmission Date: 20140515
  Serious: Yes (Death, Life-Threatening)
  Sender: FDA-Public Use
  Company Number: RU-ALEXION PHARMACEUTICALS INC.-A201301946

PATIENT
  Age: 24 Year
  Sex: Female

DRUGS (1)
  1. SOLIRIS 300MG [Suspect]
     Indication: HAEMOLYTIC URAEMIC SYNDROME
     Dosage: 900 MG, QW
     Route: 042
     Dates: start: 20130705, end: 20130712

REACTIONS (4)
  - Death [Fatal]
  - Pulmonary oedema [Unknown]
  - Intra-abdominal haemorrhage [Recovered/Resolved with Sequelae]
  - Lung disorder [Unknown]
